FAERS Safety Report 24207920 (Version 1)
Quarter: 2024Q3

REPORT INFORMATION
  Report Type: Spontaneous
  Country: US (occurrence: US)
  Receive Date: 20240814
  Receipt Date: 20240814
  Transmission Date: 20241016
  Serious: No
  Sender: SPECGX
  Company Number: US-SPECGX-T202400537

PATIENT
  Sex: Female

DRUGS (1)
  1. ACETAMINOPHEN\OXYCODONE HYDROCHLORIDE [Suspect]
     Active Substance: ACETAMINOPHEN\OXYCODONE HYDROCHLORIDE
     Indication: Product used for unknown indication
     Dosage: UNK
     Route: 065

REACTIONS (6)
  - Crying [Unknown]
  - Musculoskeletal discomfort [Unknown]
  - Insomnia [Unknown]
  - Rash [Unknown]
  - Wrong technique in product usage process [Unknown]
  - Drug ineffective [Unknown]
